FAERS Safety Report 8818404 (Version 2)
Quarter: 2013Q1

REPORT INFORMATION
  Report Type: Spontaneous
  Country: FR (occurrence: FR)
  Receive Date: 20121001
  Receipt Date: 20130208
  Transmission Date: 20140127
  Serious: Yes (Other)
  Sender: FDA-Public Use
  Company Number: FR-ROCHE-1137845

PATIENT
  Sex: 0

DRUGS (1)
  1. LUCENTIS [Suspect]
     Indication: AGE-RELATED MACULAR DEGENERATION
     Route: 050
     Dates: start: 20120606

REACTIONS (4)
  - Cerebrovascular accident [Unknown]
  - Retinal artery occlusion [Recovered/Resolved with Sequelae]
  - Retinal oedema [Recovered/Resolved with Sequelae]
  - Arteritis [Unknown]
